FAERS Safety Report 6657792-0 (Version None)
Quarter: 2010Q1

REPORT INFORMATION
  Report Type: 
  Country: None (occurrence: None)
  Receive Date: 20100330
  Receipt Date: 20100319
  Transmission Date: 20100710
  Serious: Yes (Hospitalization)
  Sender: FDA-Public Use
  Company Number: JP-ROCHE-646248

PATIENT
  Sex: Female

DRUGS (15)
  1. TOCILIZUMAB [Suspect]
     Indication: RHEUMATOID ARTHRITIS
     Route: 041
     Dates: start: 20080920, end: 20080920
  2. TOCILIZUMAB [Suspect]
     Route: 041
     Dates: start: 20081020, end: 20081020
  3. TOCILIZUMAB [Suspect]
     Route: 041
     Dates: start: 20081117, end: 20081117
  4. TOCILIZUMAB [Suspect]
     Route: 041
     Dates: start: 20081208, end: 20081208
  5. TOCILIZUMAB [Suspect]
     Route: 041
     Dates: start: 20090105, end: 20090105
  6. TOCILIZUMAB [Suspect]
     Route: 041
     Dates: start: 20090924
  7. PREDNISOLONE [Suspect]
     Indication: RHEUMATOID ARTHRITIS
     Dosage: DOSE FORM: PERORAL AGENT
     Route: 048
  8. METHOTREXATE [Concomitant]
     Route: 048
  9. VOLTAREN [Concomitant]
     Dosage: DRUG: VOLTAREN SR(DICLOFENAC SODIUM). DOSE FORM: SUSTAINED RELEASE CAPSULE
     Route: 048
  10. PARIET [Concomitant]
     Dosage: DRUG: PARIET(SODIUM RABEPRAZOLE)
     Route: 048
     Dates: end: 20090104
  11. FOLIC ACID [Concomitant]
     Dosage: DOSE FORM: PERORAL AGENT
     Route: 048
  12. GLYSENNID [Concomitant]
     Route: 048
  13. OMEPRAL [Concomitant]
     Dosage: FORM: ENTERIC COATING DRUG
     Route: 048
     Dates: start: 20090105
  14. MYSLEE [Concomitant]
     Dosage: DRUG: MYSLEE(ZOLPIDEM TARTRATE)
     Route: 048
  15. NORVASC [Concomitant]
     Dosage: DRUG: NORVASC(AMLODIPINE BESILATE)
     Route: 048

REACTIONS (2)
  - BLOOD TRIGLYCERIDES INCREASED [None]
  - SKIN ULCER [None]
